FAERS Safety Report 5843856-8 (Version None)
Quarter: 2008Q3

REPORT INFORMATION
  Report Type: 
  Country: None (occurrence: None)
  Receive Date: 20080813
  Receipt Date: 20080808
  Transmission Date: 20090109
  Serious: Yes (Death)
  Sender: FDA-Public Use
  Company Number: PHEH2008US06047

PATIENT
  Sex: Male
  Weight: 63.946 kg

DRUGS (15)
  1. DIOVAN [Suspect]
     Indication: HYPERTENSION
     Dosage: 160 MG, QD
     Dates: start: 20060410
  2. DIOVAN [Suspect]
     Dosage: 40 MG, QD
     Route: 048
     Dates: start: 20080219
  3. FLUCONAZOLE [Concomitant]
     Dosage: 100 MG, QD
     Route: 048
     Dates: start: 20080220
  4. COREG [Concomitant]
     Dosage: 12.5 MG, BID
     Route: 048
     Dates: start: 20080220
  5. FUROSEMIDE [Concomitant]
     Dosage: 80 MG, QD
     Route: 048
     Dates: start: 20080220
  6. LISINOPRIL [Concomitant]
     Dosage: 2.5 MG, QD
     Route: 048
     Dates: start: 20080220
  7. SPIRONOLACTONE [Concomitant]
     Dosage: 2.5 MG, QD
     Route: 048
     Dates: start: 20080220
  8. OXYGEN [Concomitant]
     Dosage: 3L/MIN CONTINUOUSLY
     Dates: start: 20080220
  9. PROVENTIL [Concomitant]
     Dosage: 2.5 MG/3ML Q 4 HOURS AS NEEDED
     Dates: start: 20080220
  10. DARVOCET-N 100 [Concomitant]
     Dosage: 650 MG 1-2 PILLS AS NEEDED
     Dates: start: 20080219
  11. HYDROCHLOROTHIAZIDE [Concomitant]
     Dosage: 25 MG, QD
     Route: 048
     Dates: start: 20070907
  12. SPIRIVA [Concomitant]
     Dosage: UNK
     Dates: start: 20070907
  13. PROVENTIL HFA ^KEY PHARMACEUTICAL^ [Concomitant]
     Dosage: 2 PUFFS EVERY 4-6 HOURS
     Dates: start: 20060410
  14. PLAVIX [Concomitant]
     Dosage: 75 MG, QD
     Route: 048
     Dates: start: 20060410
  15. LIPITOR [Concomitant]
     Dosage: 20 MG TABS
     Dates: start: 20060113

REACTIONS (3)
  - ANAEMIA [None]
  - CONSTIPATION [None]
  - NON-SMALL CELL LUNG CANCER [None]
